FAERS Safety Report 4912067-2 (Version None)
Quarter: 2006Q1

REPORT INFORMATION
  Report Type: 
  Country: None (occurrence: None)
  Receive Date: 20060209
  Receipt Date: 20060130
  Transmission Date: 20060701
  Serious: Yes (Death, Hospitalization)
  Sender: FDA-Public Use
  Company Number: 2006-SW-00046SW

PATIENT
  Age: 78 Year
  Sex: Male

DRUGS (10)
  1. METALYSE (TENECTEPLASE) [Suspect]
     Indication: ACUTE MYOCARDIAL INFARCTION
     Dosage: 40 MG (,ONCE), IV
     Route: 042
     Dates: start: 20050928, end: 20050928
  2. KLEXANE (HEPARIN-FRACTION, SODIUM SALT) [Suspect]
     Indication: ACUTE MYOCARDIAL INFARCTION
     Dates: start: 20050928, end: 20050928
  3. CITALOPRAM (CITALOPRAM) [Suspect]
     Indication: NEUROSIS
     Dates: start: 20050928
  4. ASPIRIN [Suspect]
     Indication: PROPHYLAXIS
     Dates: start: 20050928
  5. SELOKEN ZOC (METOPROLOL SUCCINATE) [Concomitant]
  6. ZOPIKLON SCAND PHARM (ZOPICLONE) [Concomitant]
  7. LEVOTHYROXINE SODIUM [Concomitant]
  8. FOLACIN (FOLACIN) [Concomitant]
  9. BEHEPAN (CYANOCOBALAMIN) [Concomitant]
  10. FUROSEMIDE [Concomitant]

REACTIONS (2)
  - GASTROINTESTINAL HAEMORRHAGE [None]
  - SHOCK HAEMORRHAGIC [None]
